FAERS Safety Report 15991021 (Version 1)
Quarter: 2019Q1

REPORT INFORMATION
  Report Type: Spontaneous
  Country: US (occurrence: US)
  Receive Date: 20190221
  Receipt Date: 20190221
  Transmission Date: 20190418
  Serious: No
  Sender: FDA-Public Use
  Company Number: US-LEO PHARMA-316758

PATIENT
  Sex: Female

DRUGS (2)
  1. SKINOREN CUTANEOUS FOAM [Suspect]
     Active Substance: AZELAIC ACID
     Indication: ACNE
     Dosage: USING EVERY OTHER DAY MIXED WITH CERAVE TO REDUCE PEELING
     Route: 061
     Dates: start: 20190201
  2. SKINOREN CUTANEOUS FOAM [Suspect]
     Active Substance: AZELAIC ACID
     Indication: ERYTHEMA

REACTIONS (3)
  - Inappropriate schedule of product administration [Unknown]
  - Skin exfoliation [Not Recovered/Not Resolved]
  - Wrong technique in product usage process [Not Recovered/Not Resolved]
